FAERS Safety Report 8646361 (Version 2)
Quarter: 2013Q1

REPORT INFORMATION
  Report Type: Spontaneous
  Country: US (occurrence: US)
  Receive Date: 20120702
  Receipt Date: 20130111
  Transmission Date: 20140127
  Serious: No
  Sender: FDA-Public Use
  Company Number: US-ASTRAZENECA-2012SE41557

PATIENT
  Age: 63 Year
  Sex: Male

DRUGS (4)
  1. NEXIUM [Suspect]
     Route: 048
  2. PRILOSEC [Suspect]
     Route: 048
  3. PRILOSEC [Suspect]
     Route: 048
  4. ZANTAC [Concomitant]

REACTIONS (4)
  - Disease recurrence [Unknown]
  - Abdominal discomfort [Unknown]
  - Drug ineffective [Unknown]
  - Drug dose omission [Unknown]
